FAERS Safety Report 21194630 (Version 1)
Quarter: 2022Q3

REPORT INFORMATION
  Report Type: Spontaneous
  Country: US (occurrence: None)
  Receive Date: 20220810
  Receipt Date: 20220810
  Transmission Date: 20221027
  Serious: Yes (Hospitalization)
  Sender: FDA-Public Use
  Company Number: US-ROCHE-3148802

PATIENT
  Sex: Female

DRUGS (18)
  1. AVASTIN [Suspect]
     Active Substance: BEVACIZUMAB
     Indication: Product used for unknown indication
     Route: 065
  2. LONSURF [Suspect]
     Active Substance: TIPIRACIL HYDROCHLORIDE\TRIFLURIDINE
     Indication: Colon cancer
     Route: 048
     Dates: start: 20220429
  3. LONSURF [Suspect]
     Active Substance: TIPIRACIL HYDROCHLORIDE\TRIFLURIDINE
     Route: 048
     Dates: start: 20220509
  4. LONSURF [Suspect]
     Active Substance: TIPIRACIL HYDROCHLORIDE\TRIFLURIDINE
     Route: 048
     Dates: end: 20220617
  5. LONSURF [Suspect]
     Active Substance: TIPIRACIL HYDROCHLORIDE\TRIFLURIDINE
     Route: 048
     Dates: start: 202205
  6. COVID-19 VACCINE NOS [Suspect]
     Active Substance: COVID-19 VACCINE NOS
     Indication: Product used for unknown indication
     Route: 065
     Dates: start: 20220601, end: 20220601
  7. ALLOPURINOL [Concomitant]
     Active Substance: ALLOPURINOL
  8. GLIPIZIDE [Concomitant]
     Active Substance: GLIPIZIDE
  9. LEVOTHYROXINE [Concomitant]
     Active Substance: LEVOTHYROXINE
  10. MAGNESIUM CLOFIBRATE [Concomitant]
     Active Substance: MAGNESIUM CLOFIBRATE
  11. METFORMIN [Concomitant]
     Active Substance: METFORMIN HYDROCHLORIDE
  12. SIMVASTATIN [Concomitant]
     Active Substance: SIMVASTATIN
  13. XARELTO [Concomitant]
     Active Substance: RIVAROXABAN
  14. TESSALON [Concomitant]
     Active Substance: BENZONATATE
  15. FERROUS SULFATE [Concomitant]
     Active Substance: FERROUS SULFATE
  16. MAGNESIUM OXIDE [Concomitant]
     Active Substance: MAGNESIUM OXIDE
  17. LOPRESSOR [Concomitant]
     Active Substance: METOPROLOL TARTRATE
  18. ZOFRAN [Concomitant]
     Active Substance: ONDANSETRON HYDROCHLORIDE

REACTIONS (7)
  - Weight decreased [Unknown]
  - Neuralgia [Unknown]
  - Decreased appetite [Not Recovered/Not Resolved]
  - Fatigue [Unknown]
  - Full blood count abnormal [Not Recovered/Not Resolved]
  - Pyrexia [Unknown]
  - Illness [Unknown]
